FAERS Safety Report 10150164 (Version 1)
Quarter: 2014Q2

REPORT INFORMATION
  Report Type: Spontaneous
  Country: CH (occurrence: CH)
  Receive Date: 20140502
  Receipt Date: 20140502
  Transmission Date: 20141212
  Serious: Yes (Life-Threatening, Hospitalization)
  Sender: FDA-Public Use
  Company Number: CH-GLAXOSMITHKLINE-B0990515A

PATIENT
  Age: 38 Year
  Sex: Male
  Weight: 95 kg

DRUGS (5)
  1. LAMICTAL [Suspect]
     Indication: EPILEPSY
     Dosage: 25MG EVERY TWO WEEKS
     Route: 048
     Dates: start: 20140226, end: 20140411
  2. KEPPRA [Suspect]
     Indication: EPILEPSY
     Dosage: 1000MG TWICE PER DAY
     Route: 048
     Dates: start: 20140210, end: 20140417
  3. URBANYL [Concomitant]
     Indication: EPILEPSY
     Dosage: 5MG FOUR TIMES PER DAY
     Route: 048
     Dates: start: 201401
  4. TRIAMCINOLON [Concomitant]
     Indication: RASH MACULO-PAPULAR
     Route: 061
     Dates: start: 20140408
  5. PREDNISOLONE [Concomitant]
     Indication: RASH MACULO-PAPULAR
     Dosage: 50MG PER DAY
     Route: 048
     Dates: start: 20140414, end: 20140414

REACTIONS (8)
  - Drug reaction with eosinophilia and systemic symptoms [Recovering/Resolving]
  - Hepatocellular injury [Recovered/Resolved]
  - Renal failure acute [Recovered/Resolved]
  - Rash maculo-papular [Recovering/Resolving]
  - Hypoalbuminaemia [Unknown]
  - Pyrexia [Recovered/Resolved]
  - Normochromic normocytic anaemia [Not Recovered/Not Resolved]
  - Blood lactate dehydrogenase increased [Recovering/Resolving]
